FAERS Safety Report 8368163-3 (Version None)
Quarter: 2012Q2

REPORT INFORMATION
  Report Type: 
  Country: None (occurrence: None)
  Receive Date: 20120517
  Receipt Date: 20120514
  Transmission Date: 20120825
  Serious: Yes (Hospitalization)
  Sender: FDA-Public Use
  Company Number: CA-ABBOTT-11P-028-0862085-00

PATIENT
  Sex: Male
  Weight: 57.658 kg

DRUGS (21)
  1. VITALUX [Concomitant]
     Indication: VITAMIN SUPPLEMENTATION
     Dosage: UNKNOWN
     Route: 048
  2. PREDNISONE TAB [Concomitant]
     Indication: RHEUMATOID ARTHRITIS
     Route: 048
     Dates: start: 20040101
  3. ALTACE [Concomitant]
     Indication: HYPERTENSION
     Route: 048
     Dates: start: 20050101
  4. FLOMAX [Concomitant]
     Indication: PROSTATIC DISORDER
     Route: 048
     Dates: start: 20080101
  5. VENTOLIN [Concomitant]
     Indication: ASTHMA
     Route: 055
     Dates: start: 20040101
  6. SPIRIVA [Concomitant]
     Indication: ASTHMA
     Route: 055
     Dates: start: 20110401
  7. IMOVANE/ZOPICLONE [Concomitant]
     Indication: SLEEP DISORDER THERAPY
     Route: 048
     Dates: start: 20090101
  8. HUMIRA [Suspect]
     Indication: RHEUMATOID ARTHRITIS
     Route: 058
     Dates: start: 20090729, end: 20110602
  9. VITAMIN D [Concomitant]
     Indication: VITAMIN SUPPLEMENTATION
     Route: 048
  10. PRAVACHOL [Concomitant]
     Indication: BLOOD CHOLESTEROL INCREASED
     Route: 048
     Dates: start: 20050101
  11. PROSCAR [Concomitant]
     Indication: PROSTATIC DISORDER
     Route: 048
     Dates: start: 20080101
  12. HUMIRA [Suspect]
     Route: 058
     Dates: start: 20111001, end: 20120202
  13. PANTOPRAZOLE SODIUM [Concomitant]
     Indication: GASTROOESOPHAGEAL REFLUX DISEASE
     Route: 048
     Dates: start: 20070101
  14. NEURONTIN [Concomitant]
     Indication: CARDIOVASCULAR DISORDER
     Route: 048
     Dates: start: 20040101
  15. FOSAMAX [Concomitant]
     Indication: SUPPLEMENTATION THERAPY
     Route: 048
     Dates: start: 20090101
  16. PLAVIX [Concomitant]
     Indication: ANTICOAGULANT THERAPY
     Route: 048
     Dates: start: 20050101
  17. CARBOCAL D [Concomitant]
     Indication: OSTEOPOROSIS PROPHYLAXIS
     Route: 048
     Dates: start: 19920101
  18. TIAZAC [Concomitant]
     Indication: ATRIAL FIBRILLATION
     Route: 048
     Dates: start: 20090101
  19. NITROGLYCERIN [Concomitant]
     Indication: CARDIAC DISORDER
     Route: 061
  20. CALCIUM [Concomitant]
     Indication: MINERAL SUPPLEMENTATION
     Route: 048
  21. FLOVENT [Concomitant]
     Indication: ASTHMA
     Route: 055

REACTIONS (2)
  - PNEUMONIA [None]
  - LOSS OF CONSCIOUSNESS [None]
